FAERS Safety Report 9914856 (Version 1)
Quarter: 2014Q1

REPORT INFORMATION
  Report Type: Spontaneous
  Country: US (occurrence: US)
  Receive Date: 20140220
  Receipt Date: 20140220
  Transmission Date: 20141002
  Serious: Yes (Other)
  Sender: FDA-Public Use
  Company Number: US-PFIZER INC-2014044448

PATIENT
  Sex: Male

DRUGS (3)
  1. ADVIL COLD AND SINUS [Suspect]
     Indication: HYPERSENSITIVITY
     Dosage: UNK
  2. ADVIL COLD AND SINUS [Suspect]
     Indication: SINUS CONGESTION
  3. ADVIL COLD AND SINUS [Suspect]
     Indication: SINUS DISORDER

REACTIONS (1)
  - Drug dependence [Unknown]
